FAERS Safety Report 24849816 (Version 1)
Quarter: 2025Q1

REPORT INFORMATION
  Report Type: Spontaneous
  Country: US (occurrence: None)
  Receive Date: 20250115
  Receipt Date: 20250115
  Transmission Date: 20250408
  Serious: Yes (Hospitalization)
  Sender: FDA-CTU
  Company Number: None

PATIENT
  Age: 75 Year
  Sex: Female
  Weight: 69.4 kg

DRUGS (1)
  1. LEQEMBI [Suspect]
     Active Substance: LECANEMAB-IRMB
     Indication: Dementia
     Route: 042
     Dates: start: 20241223, end: 20241223

REACTIONS (14)
  - Infusion related reaction [None]
  - Mental status changes [None]
  - Confusional state [None]
  - Aphasia [None]
  - Hypertension [None]
  - Chills [None]
  - Pyrexia [None]
  - Tachycardia [None]
  - Respiratory tract congestion [None]
  - Leukocytosis [None]
  - Anaemia [None]
  - Troponin increased [None]
  - Blood magnesium decreased [None]
  - Blood glucose increased [None]

NARRATIVE: CASE EVENT DATE: 20241223
